FAERS Safety Report 10160931 (Version 1)
Quarter: 2014Q2

REPORT INFORMATION
  Report Type: Spontaneous
  Country: US (occurrence: US)
  Receive Date: 20140508
  Receipt Date: 20140508
  Transmission Date: 20141212
  Serious: No
  Sender: FDA-Public Use
  Company Number: US-009507513-1405USA003738

PATIENT
  Age: 71 Year
  Sex: Male

DRUGS (2)
  1. PROVENTIL [Suspect]
     Indication: COUGH
     Dosage: 90 MICROGRAM, 2 PUFFS EVERY 4 HOURS AS NEEDED
     Route: 055
     Dates: start: 20140429
  2. PROVENTIL [Suspect]
     Indication: DYSPNOEA

REACTIONS (4)
  - Dyspnoea [Recovering/Resolving]
  - Cough [Recovering/Resolving]
  - Drug dose omission [Unknown]
  - Product quality issue [Unknown]
